FAERS Safety Report 14244666 (Version 3)
Quarter: 2018Q2

REPORT INFORMATION
  Report Type: Report from Study
  Country: CO (occurrence: CO)
  Receive Date: 20171201
  Receipt Date: 20180511
  Transmission Date: 20180711
  Serious: Yes (Life-Threatening, Other)
  Sender: FDA-Public Use
  Company Number: PHHY2017CO176754

PATIENT
  Age: 37 Year
  Sex: Male
  Weight: 71 kg

DRUGS (2)
  1. SANDOSTATIN LAR DEPOT [Suspect]
     Active Substance: OCTREOTIDE ACETATE
     Indication: NEUROENDOCRINE TUMOUR
     Dosage: 20 MG, QMO
     Route: 030
     Dates: start: 2016
  2. SANDOSTATIN LAR DEPOT [Suspect]
     Active Substance: OCTREOTIDE ACETATE
     Indication: GASTROENTEROPANCREATIC NEUROENDOCRINE TUMOUR DISEASE

REACTIONS (9)
  - Internal haemorrhage [Unknown]
  - Malaise [Unknown]
  - Irritability [Unknown]
  - Platelet count decreased [Unknown]
  - Yellow skin [Recovered/Resolved]
  - Haemorrhagic cyst [Unknown]
  - Asthenia [Unknown]
  - Hepatic lesion [Unknown]
  - Cyst [Unknown]

NARRATIVE: CASE EVENT DATE: 201709
